FAERS Safety Report 23400927 (Version 1)
Quarter: 2024Q1

REPORT INFORMATION
  Report Type: Spontaneous
  Country: IL (occurrence: IL)
  Receive Date: 20240115
  Receipt Date: 20240115
  Transmission Date: 20240409
  Serious: Yes (Other)
  Sender: FDA-Public Use
  Company Number: IL-UCBSA-2023054795

PATIENT
  Age: 55 Year
  Sex: Female

DRUGS (5)
  1. CIMZIA [Suspect]
     Active Substance: CERTOLIZUMAB PEGOL
     Indication: Ankylosing spondylitis
     Dosage: 400 MILLIGRAM, EV 2 WEEKS(QOW)
     Dates: start: 20231116, end: 2023
  2. CIMZIA [Suspect]
     Active Substance: CERTOLIZUMAB PEGOL
     Dosage: 200 MILLIGRAM, EV 2 WEEKS(QOW)
     Dates: start: 2023, end: 202312
  3. COLCHICINE [Concomitant]
     Active Substance: COLCHICINE
     Indication: Ankylosing spondylitis
     Dosage: UNK
     Dates: start: 2023
  4. PROLOL [PROPRANOLOL HYDROCHLORIDE] [Concomitant]
     Indication: Migraine
     Dosage: UNK
     Dates: start: 2014
  5. AMITRIPTYLINE HYDROCHLORIDE [Concomitant]
     Active Substance: AMITRIPTYLINE HYDROCHLORIDE
     Indication: Fibromyalgia
     Dosage: UNK
     Dates: start: 2022

REACTIONS (2)
  - Ankylosing spondylitis [Unknown]
  - Head discomfort [Recovering/Resolving]

NARRATIVE: CASE EVENT DATE: 20231101
